FAERS Safety Report 8099194-9 (Version None)
Quarter: 2012Q1

REPORT INFORMATION
  Report Type: 
  Country: None (occurrence: None)
  Receive Date: 20120129
  Receipt Date: 20111005
  Transmission Date: 20120608
  Serious: Yes (Other)
  Sender: FDA-Public Use
  Company Number: US-ABBOTT-11P-163-0861028-00

PATIENT
  Sex: Female

DRUGS (6)
  1. HUMIRA [Suspect]
     Route: 058
     Dates: start: 20110101, end: 20110401
  2. ONDANSETRON HCL [Concomitant]
     Indication: NAUSEA
  3. HUMIRA [Suspect]
     Indication: CROHN'S DISEASE
     Route: 058
     Dates: start: 20101201, end: 20101201
  4. HUMIRA [Suspect]
     Route: 058
     Dates: start: 20110401
  5. IMITREX [Concomitant]
     Indication: MIGRAINE
  6. HUMIRA [Suspect]
     Route: 058
     Dates: start: 20101201, end: 20101201

REACTIONS (2)
  - MALIGNANT MELANOMA [None]
  - DRUG INEFFECTIVE [None]
